FAERS Safety Report 13170076 (Version 2)
Quarter: 2017Q1

REPORT INFORMATION
  Report Type: Report from Study
  Country: None (occurrence: GR)
  Receive Date: 20170131
  Receipt Date: 20170206
  Transmission Date: 20170428
  Serious: Yes (Hospitalization, Other)
  Sender: FDA-Public Use
  Company Number: GR-ABBVIE-17P-066-1855791-00

PATIENT
  Sex: Female
  Weight: 41 kg

DRUGS (5)
  1. DUODOPA [Suspect]
     Active Substance: CARBIDOPA\LEVODOPA
     Indication: PARKINSON^S DISEASE
     Dosage: MORNING DOSE: 13ML; CONTINUOUS RATE: 4.2ML/H; EXTRA DOSE: 1.5ML
     Route: 050
     Dates: start: 20150720
  2. NEURONTIN [Concomitant]
     Active Substance: GABAPENTIN
     Indication: PRODUCT USED FOR UNKNOWN INDICATION
     Route: 048
  3. DIAMICRON [Concomitant]
     Active Substance: GLICLAZIDE
     Indication: DIABETES MELLITUS
     Route: 048
  4. NEURONTIN [Concomitant]
     Active Substance: GABAPENTIN
     Route: 048
  5. REMERON [Concomitant]
     Active Substance: MIRTAZAPINE
     Indication: NERVOUS SYSTEM DISORDER
     Route: 048

REACTIONS (8)
  - Ileus [Recovered/Resolved]
  - Viral infection [Recovered/Resolved]
  - Constipation [Unknown]
  - Haematemesis [Unknown]
  - Vomiting [Unknown]
  - Flatulence [Unknown]
  - Abdominal pain [Unknown]
  - Pyrexia [Unknown]

NARRATIVE: CASE EVENT DATE: 20170122
